FAERS Safety Report 5511597-2 (Version None)
Quarter: 2007Q4

REPORT INFORMATION
  Report Type: 
  Country: None (occurrence: None)
  Receive Date: 20071109
  Receipt Date: 20071102
  Transmission Date: 20080405
  Serious: Yes (Death)
  Sender: FDA-Public Use
  Company Number: JP-ABBOTT-07P-087-0423199-00

PATIENT
  Age: 65 Year
  Sex: Female

DRUGS (3)
  1. CEFZON [Suspect]
     Indication: DRUG USE FOR UNKNOWN INDICATION
     Route: 048
  2. LOXOPROFEN [Concomitant]
     Indication: DRUG USE FOR UNKNOWN INDICATION
  3. MISOPROSTOL [Concomitant]
     Indication: DRUG USE FOR UNKNOWN INDICATION

REACTIONS (1)
  - LIVER DISORDER [None]
